FAERS Safety Report 4792475-3 (Version None)
Quarter: 2005Q4

REPORT INFORMATION
  Report Type: 
  Country: None (occurrence: None)
  Receive Date: 20051010
  Receipt Date: 20050929
  Transmission Date: 20060501
  Serious: Yes (Hospitalization)
  Sender: FDA-Public Use
  Company Number: FR-GLAXOSMITHKLINE-B0396447A

PATIENT
  Age: 61 Year
  Sex: Female

DRUGS (6)
  1. AUGMENTIN '125' [Suspect]
     Indication: LUNG DISORDER
     Dosage: 1000MG TWICE PER DAY
     Route: 048
     Dates: start: 20050201, end: 20050213
  2. SOTALOL HCL [Suspect]
     Dosage: 1UNIT PER DAY
     Route: 048
     Dates: start: 20040626, end: 20050527
  3. ZITHROMAX [Concomitant]
     Route: 065
     Dates: start: 20050214, end: 20050217
  4. ORELOX [Concomitant]
     Route: 065
     Dates: start: 20050217
  5. PYOSTACINE [Concomitant]
     Route: 065
     Dates: start: 20050217
  6. CORTICOSTEROID [Concomitant]
     Route: 065
     Dates: start: 20050217

REACTIONS (8)
  - ALANINE AMINOTRANSFERASE INCREASED [None]
  - ASPARTATE AMINOTRANSFERASE INCREASED [None]
  - CHROMATURIA [None]
  - GAMMA-GLUTAMYLTRANSFERASE INCREASED [None]
  - HEPATIC FIBROSIS [None]
  - HEPATITIS CHOLESTATIC [None]
  - JAUNDICE [None]
  - PRURITUS [None]
